FAERS Safety Report 10143569 (Version 2)
Quarter: 2014Q2

REPORT INFORMATION
  Report Type: Spontaneous
  Country: CA (occurrence: CA)
  Receive Date: 20140430
  Receipt Date: 20140430
  Transmission Date: 20141212
  Serious: Yes (Other)
  Sender: FDA-Public Use
  Company Number: CA-009507513-1311CAN008662

PATIENT
  Age: 50 Year
  Sex: Male
  Weight: 114 kg

DRUGS (4)
  1. EMEND IV [Suspect]
     Indication: PROPHYLAXIS OF NAUSEA AND VOMITING
     Dosage: 150 MG, Q3W
     Route: 042
     Dates: start: 20131025, end: 20131118
  2. DOCETAXEL [Concomitant]
     Route: 042
  3. CISPLATIN [Concomitant]
     Route: 042
  4. FLUOROURACIL [Concomitant]
     Route: 065

REACTIONS (5)
  - Choking sensation [Recovered/Resolved]
  - Skin discolouration [Recovered/Resolved]
  - Dyspnoea [Recovered/Resolved]
  - Hypersensitivity [Recovered/Resolved]
  - Erythema [Recovered/Resolved]
